FAERS Safety Report 10169181 (Version 1)
Quarter: 2014Q2

REPORT INFORMATION
  Report Type: Report from Study
  Country: JP (occurrence: JP)
  Receive Date: 20140513
  Receipt Date: 20140513
  Transmission Date: 20141212
  Serious: Yes (Life-Threatening)
  Sender: FDA-Public Use
  Company Number: JP-SA-2014SA061043

PATIENT
  Age: 62 Year
  Sex: Male
  Weight: 78.8 kg

DRUGS (13)
  1. THYMOGLOBULINE [Suspect]
     Indication: APLASTIC ANAEMIA
     Route: 042
     Dates: start: 20100607, end: 20100611
  2. SAXIZON [Concomitant]
     Indication: PROPHYLAXIS
     Dates: start: 20100607, end: 20100611
  3. SOL-MELCORT [Concomitant]
     Indication: PROPHYLAXIS
     Dates: start: 20100607, end: 20100613
  4. EUGLUCON [Concomitant]
     Indication: TYPE 2 DIABETES MELLITUS
  5. MELBIN [Concomitant]
     Indication: TYPE 2 DIABETES MELLITUS
  6. PRAVASTATIN SODIUM [Concomitant]
     Indication: TYPE 2 DIABETES MELLITUS
  7. BLOPRESS [Concomitant]
     Indication: HYPERTENSION
  8. NORVASC [Concomitant]
     Indication: HYPERTENSION
  9. NEORAL [Concomitant]
     Indication: APLASTIC ANAEMIA
     Dates: start: 20100607
  10. FLUCINAR [Concomitant]
     Indication: INFECTION PROPHYLAXIS
     Dates: start: 20100607
  11. DAIPHEN [Concomitant]
     Indication: INFECTION PROPHYLAXIS
     Dates: start: 20100611, end: 20101031
  12. MEDROL [Concomitant]
     Indication: ALLERGY PROPHYLAXIS
     Dates: start: 20100614, end: 20100725
  13. OMEPRAZOLE [Concomitant]
     Indication: PROPHYLAXIS AGAINST GASTROINTESTINAL ULCER
     Dates: start: 20100621

REACTIONS (2)
  - Febrile neutropenia [Recovered/Resolved]
  - Septic shock [Recovered/Resolved]
